FAERS Safety Report 11630150 (Version 3)
Quarter: 2015Q4

REPORT INFORMATION
  Report Type: Report from Study
  Country: CA (occurrence: CA)
  Receive Date: 20151014
  Receipt Date: 20151028
  Transmission Date: 20160304
  Serious: Yes (Death, Hospitalization)
  Sender: FDA-Public Use
  Company Number: CA-AMGEN-CANCT2015106743

PATIENT
  Age: 71 Year
  Sex: Male

DRUGS (3)
  1. LENALIDOMIDE [Concomitant]
     Active Substance: LENALIDOMIDE
     Indication: PLASMA CELL MYELOMA
     Dosage: UNK
  2. BORTEZOMIB [Concomitant]
     Active Substance: BORTEZOMIB
     Indication: PLASMA CELL MYELOMA
     Dosage: UNK
  3. CARFILZOMIB [Suspect]
     Active Substance: CARFILZOMIB
     Indication: PLASMA CELL MYELOMA
     Dosage: 20 MG/M2, PER CHEMO REGIM
     Route: 042
     Dates: start: 20150810

REACTIONS (1)
  - Platelet count decreased [Fatal]

NARRATIVE: CASE EVENT DATE: 20150814
